FAERS Safety Report 18829225 (Version 2)
Quarter: 2021Q1

REPORT INFORMATION
  Report Type: Spontaneous
  Country: KR (occurrence: KR)
  Receive Date: 20210201
  Receipt Date: 20210224
  Transmission Date: 20210419
  Serious: Yes (Other)
  Sender: FDA-Public Use
  Company Number: KR-GILEAD-2021-0515436

PATIENT
  Sex: Female

DRUGS (4)
  1. PREDISOL [METHYLPREDNISOLONE] [Concomitant]
     Dosage: UNK
     Dates: start: 20210125, end: 20210128
  2. VEKLURY [Suspect]
     Active Substance: REMDESIVIR
     Indication: PNEUMONIA
     Dosage: 100 MG
     Route: 042
     Dates: start: 20210127, end: 20210128
  3. TYLENOL 8HR [Concomitant]
     Active Substance: ACETAMINOPHEN
     Dosage: 650 MG
     Dates: start: 20210121, end: 20210130
  4. ACETAMINOPHEN. [Concomitant]
     Active Substance: ACETAMINOPHEN

REACTIONS (4)
  - C-reactive protein increased [Recovered/Resolved]
  - Drug-induced liver injury [Not Recovered/Not Resolved]
  - Transaminases increased [Recovered/Resolved]
  - Blood alkaline phosphatase increased [Recovered/Resolved]

NARRATIVE: CASE EVENT DATE: 20210128
